FAERS Safety Report 24161559 (Version 1)
Quarter: 2024Q3

REPORT INFORMATION
  Report Type: Spontaneous
  Country: FR (occurrence: FR)
  Receive Date: 20240801
  Receipt Date: 20240801
  Transmission Date: 20241017
  Serious: Yes (Other)
  Sender: SANOFI AVENTIS
  Company Number: None

PATIENT
  Age: 78 Year
  Sex: Male
  Weight: 79 kg

DRUGS (3)
  1. CEFAZOLIN SODIUM [Suspect]
     Active Substance: CEFAZOLIN SODIUM
     Indication: Endocarditis
     Dosage: 4.5 G, QD
     Route: 042
     Dates: start: 20240602, end: 20240624
  2. RIFAMPIN [Suspect]
     Active Substance: RIFAMPIN
     Indication: Endocarditis
     Dosage: 900 MG, QD
     Route: 048
     Dates: start: 20240604, end: 20240614
  3. RIFAMPIN [Suspect]
     Active Substance: RIFAMPIN
     Dosage: 1200 MG, QD
     Route: 042
     Dates: start: 20240614, end: 20240624

REACTIONS (1)
  - Hepatic failure [Recovered/Resolved]

NARRATIVE: CASE EVENT DATE: 20240624
